FAERS Safety Report 10029322 (Version 2)
Quarter: 2014Q1

REPORT INFORMATION
  Report Type: Spontaneous
  Country: US (occurrence: US)
  Receive Date: 20140321
  Receipt Date: 20140321
  Transmission Date: 20141002
  Serious: Yes (Hospitalization, Other)
  Sender: FDA-Public Use
  Company Number: CHPA2012US011169

PATIENT
  Age: 86 Year
  Sex: Female

DRUGS (6)
  1. PREVACID 24HR 15MG [Suspect]
     Indication: GASTROOESOPHAGEAL REFLUX DISEASE
     Dosage: UNK, UNK
     Route: 048
     Dates: start: 201403
  2. PREVACID 24HR 15MG [Suspect]
     Indication: OFF LABEL USE
     Dosage: 30 MG, QD
     Route: 048
     Dates: start: 201203
  3. ANTIHYPERTENSIVE DRUGS [Concomitant]
  4. DRUG THERAPY NOS [Concomitant]
  5. OXYCOD//OXYTOCIN [Concomitant]
     Route: 065
  6. TRAMADOL [Concomitant]
     Route: 065

REACTIONS (7)
  - Spinal fracture [Recovering/Resolving]
  - Tremor [Not Recovered/Not Resolved]
  - Chest pain [Not Recovered/Not Resolved]
  - Dysgeusia [Not Recovered/Not Resolved]
  - Diarrhoea [Not Recovered/Not Resolved]
  - Incorrect drug dosage form administered [Not Recovered/Not Resolved]
  - Incorrect drug administration duration [Not Recovered/Not Resolved]
